FAERS Safety Report 6279503-3 (Version None)
Quarter: 2009Q3

REPORT INFORMATION
  Report Type: 
  Country: None (occurrence: None)
  Receive Date: 20090723
  Receipt Date: 20090713
  Transmission Date: 20100115
  Serious: Yes (Death)
  Sender: FDA-Public Use
  Company Number: JP-PFIZER INC-2009239916

PATIENT
  Age: 60 Year

DRUGS (6)
  1. ADRIACIN [Suspect]
     Indication: BREAST CANCER
     Dosage: UNK
     Dates: start: 20041101, end: 20050301
  2. ENDOXAN [Suspect]
     Indication: BREAST CANCER
     Dosage: UNK
     Dates: start: 20041101, end: 20050301
  3. TAXOTERE [Concomitant]
     Dosage: 60 MG/M2, UNK
  4. TAXOL [Concomitant]
     Dosage: UNK, 1/3 WEEK
     Dates: start: 20070101
  5. VINORELBINE [Concomitant]
     Dosage: 80 MG/M2, UNK
  6. TRASTUZUMAB [Concomitant]
     Dosage: 1/WEEK

REACTIONS (2)
  - ACUTE LYMPHOCYTIC LEUKAEMIA [None]
  - NEOPLASM MALIGNANT [None]
